FAERS Safety Report 24967939 (Version 1)
Quarter: 2025Q1

REPORT INFORMATION
  Report Type: Spontaneous
  Country: CA (occurrence: CA)
  Receive Date: 20250214
  Receipt Date: 20250214
  Transmission Date: 20250409
  Serious: Yes (Hospitalization)
  Sender: ROCHE
  Company Number: CA-002147023-NVSC2025CA020566

PATIENT
  Age: 63 Year
  Sex: Female

DRUGS (10)
  1. OMALIZUMAB [Suspect]
     Active Substance: OMALIZUMAB
     Indication: Asthma
     Dosage: 225 MG, Q2W
     Route: 050
  2. OMALIZUMAB [Suspect]
     Active Substance: OMALIZUMAB
     Dosage: 225 MG, Q2W
     Route: 050
  3. OMALIZUMAB [Suspect]
     Active Substance: OMALIZUMAB
     Dosage: 225 MG, Q2W
     Route: 050
  4. OMALIZUMAB [Suspect]
     Active Substance: OMALIZUMAB
     Dosage: 225 MG, Q2W
     Route: 050
  5. OMALIZUMAB [Suspect]
     Active Substance: OMALIZUMAB
     Dosage: 225 MG, Q2W
     Route: 050
  6. OMALIZUMAB [Suspect]
     Active Substance: OMALIZUMAB
     Dosage: 225 MG, Q2W
     Route: 050
  7. OMALIZUMAB [Suspect]
     Active Substance: OMALIZUMAB
     Dosage: 225 MG, Q2W
     Route: 050
  8. COTELLIC [Concomitant]
     Active Substance: COBIMETINIB FUMARATE
     Indication: Product used for unknown indication
     Route: 050
  9. METHOTREXATE [Concomitant]
     Active Substance: METHOTREXATE
     Indication: Product used for unknown indication
  10. PREDNISONE [Concomitant]
     Active Substance: PREDNISONE
     Indication: Product used for unknown indication

REACTIONS (22)
  - Discomfort [Recovering/Resolving]
  - Anxiety [Recovering/Resolving]
  - Asthma [Recovering/Resolving]
  - Bronchitis [Recovering/Resolving]
  - Chest discomfort [Recovering/Resolving]
  - Cough [Recovering/Resolving]
  - Cystitis escherichia [Recovering/Resolving]
  - Diarrhoea [Recovering/Resolving]
  - Dyspnoea [Recovering/Resolving]
  - Fear [Recovering/Resolving]
  - General physical health deterioration [Recovering/Resolving]
  - Incorrect dose administered [Unknown]
  - Ligament rupture [Recovering/Resolving]
  - Malaise [Recovering/Resolving]
  - Mobility decreased [Recovering/Resolving]
  - Pneumonia [Recovering/Resolving]
  - Sleep disorder [Recovering/Resolving]
  - Throat cancer [Recovering/Resolving]
  - Throat clearing [Recovering/Resolving]
  - Weight decreased [Recovering/Resolving]
  - Weight increased [Recovering/Resolving]
  - Wrong technique in product usage process [Unknown]
